FAERS Safety Report 5237444-4 (Version None)
Quarter: 2007Q1

REPORT INFORMATION
  Report Type: 
  Country: None (occurrence: None)
  Receive Date: 20070213
  Receipt Date: 20070202
  Transmission Date: 20070707
  Serious: Yes (Other)
  Sender: FDA-Public Use
  Company Number: US-PFIZER INC-2006152670

PATIENT
  Age: 75 Year
  Sex: Male
  Weight: 94.3 kg

DRUGS (5)
  1. LYRICA [Suspect]
     Indication: LIMB OPERATION
     Route: 048
     Dates: start: 20061128, end: 20061201
  2. ALL OTHER THERAPEUTIC PRODUCTS [Concomitant]
  3. PERCOCET [Concomitant]
  4. DARVOCET [Concomitant]
  5. CYMBALTA [Concomitant]

REACTIONS (1)
  - BLADDER DISORDER [None]
